FAERS Safety Report 12318237 (Version 2)
Quarter: 2016Q2

REPORT INFORMATION
  Report Type: Spontaneous
  Country: MX (occurrence: MX)
  Receive Date: 20160429
  Receipt Date: 20160620
  Transmission Date: 20160815
  Serious: Yes (Hospitalization)
  Sender: FDA-Public Use
  Company Number: MX-ELI_LILLY_AND_COMPANY-MX201604008668

PATIENT
  Age: 31 Year
  Sex: Male

DRUGS (1)
  1. HUMALOG [Suspect]
     Active Substance: INSULIN LISPRO
     Indication: TYPE 1 DIABETES MELLITUS
     Dosage: 34 U, QD
     Route: 058

REACTIONS (1)
  - Diabetic ketoacidosis [Recovered/Resolved]

NARRATIVE: CASE EVENT DATE: 20160411
